FAERS Safety Report 12983806 (Version 1)
Quarter: 2016Q4

REPORT INFORMATION
  Report Type: Spontaneous
  Country: US (occurrence: US)
  Receive Date: 20161129
  Receipt Date: 20161129
  Transmission Date: 20170207
  Serious: No
  Sender: FDA-Public Use
  Company Number: US-ENDO PHARMACEUTICALS INC.-2016-001817

PATIENT
  Sex: Male
  Weight: 88.53 kg

DRUGS (3)
  1. CRESTOR [Concomitant]
     Active Substance: ROSUVASTATIN CALCIUM
     Indication: BLOOD CHOLESTEROL INCREASED
  2. TESTIM [Suspect]
     Active Substance: TESTOSTERONE
     Indication: FATIGUE
  3. TESTIM [Suspect]
     Active Substance: TESTOSTERONE
     Indication: LETHARGY
     Route: 061
     Dates: start: 201409

REACTIONS (2)
  - Fatigue [Not Recovered/Not Resolved]
  - Off label use [Not Recovered/Not Resolved]

NARRATIVE: CASE EVENT DATE: 2014
